FAERS Safety Report 5325296-3 (Version None)
Quarter: 2007Q2

REPORT INFORMATION
  Report Type: 
  Country: None (occurrence: None)
  Receive Date: 20070515
  Receipt Date: 20070510
  Transmission Date: 20071010
  Serious: Yes (Life-Threatening)
  Sender: FDA-Public Use
  Company Number: GB-MERCK-0705GBR00038

PATIENT
  Age: 78 Year
  Weight: 51 kg

DRUGS (5)
  1. ZETIA [Suspect]
     Indication: HYPERTENSION
     Route: 048
     Dates: start: 20050201
  2. ROSUVASTATIN CALCIUM [Suspect]
     Indication: HYPERCHOLESTEROLAEMIA
     Route: 048
     Dates: start: 20041201
  3. CALCIUM CARBONATE AND CHOLECALCIFEROL [Concomitant]
     Indication: BONE DISORDER
     Route: 048
     Dates: start: 20070225
  4. BENDROFLUMETHIAZIDE [Concomitant]
     Indication: HYPERTENSION
     Route: 048
     Dates: start: 20050315
  5. ACETAMINOPHEN AND CODEINE PHOSPHATE [Concomitant]
     Indication: PAIN
     Route: 048

REACTIONS (2)
  - AMNESIA [None]
  - DEMENTIA [None]
